FAERS Safety Report 7248839 (Version 9)
Quarter: 2016Q3

REPORT INFORMATION
  Report Type: Report from Study
  Country: CA (occurrence: CA)
  Receive Date: 20100119
  Receipt Date: 20160812
  Transmission Date: 20161109
  Serious: Yes (Hospitalization, Other)
  Sender: FDA-Public Use
  Company Number: PHHY2009CA56003

PATIENT
  Age: 73 Year
  Sex: Female

DRUGS (8)
  1. SANDOSTATIN LAR DEPOT [Suspect]
     Active Substance: OCTREOTIDE ACETATE
     Dosage: 20 MG, QMO (EVERY FOUR WEEKS)
     Route: 030
     Dates: start: 20130907
  2. JANUVIA [Suspect]
     Active Substance: SITAGLIPTIN PHOSPHATE
     Indication: BLOOD GLUCOSE ABNORMAL
     Route: 065
  3. OXYCONTIN PRN [Concomitant]
     Indication: PRODUCT USED FOR UNKNOWN INDICATION
     Dosage: UNK, PRN
     Route: 065
  4. SANDOSTATIN LAR DEPOT [Suspect]
     Active Substance: OCTREOTIDE ACETATE
     Dosage: 30 MG, QMO (EVERY FOUR WEEKS)
     Route: 030
     Dates: start: 20120715, end: 20130313
  5. ACCUPRIL [Concomitant]
     Active Substance: QUINAPRIL HYDROCHLORIDE
     Indication: PRODUCT USED FOR UNKNOWN INDICATION
     Dosage: 40 MG, QD
     Route: 065
  6. GLYBURIDE. [Concomitant]
     Active Substance: GLYBURIDE
     Indication: BLOOD GLUCOSE ABNORMAL
     Dosage: 5 MG, QD
     Route: 065
  7. SANDOSTATIN LAR DEPOT [Suspect]
     Active Substance: OCTREOTIDE ACETATE
     Dosage: 20 MG, QMO (EVERY 4 WEEKS)
     Route: 030
     Dates: start: 20110427, end: 20120328
  8. SANDOSTATIN LAR DEPOT [Suspect]
     Active Substance: OCTREOTIDE ACETATE
     Indication: NEUROENDOCRINE TUMOUR
     Dosage: 30 MG, QMO (EVERY 4 WEEKS)
     Route: 030
     Dates: start: 20091211, end: 20110303

REACTIONS (39)
  - Blood potassium decreased [Unknown]
  - Diabetes mellitus [Unknown]
  - Abdominal pain upper [Unknown]
  - Hyperhidrosis [Unknown]
  - Hypoaesthesia [Unknown]
  - Oedema peripheral [Unknown]
  - Nausea [Unknown]
  - Malignant neoplasm progression [Unknown]
  - Sinusitis [Unknown]
  - Therapeutic response decreased [Unknown]
  - Nervousness [Unknown]
  - Pruritus [Not Recovered/Not Resolved]
  - Blood glucose increased [Recovering/Resolving]
  - Erythema [Unknown]
  - Tinnitus [Not Recovered/Not Resolved]
  - Pain [Unknown]
  - Dyspnoea [Unknown]
  - Abdominal distension [Recovered/Resolved]
  - Flushing [Recovered/Resolved]
  - Rash pruritic [Unknown]
  - Decreased appetite [Unknown]
  - Urine abnormality [Unknown]
  - Neoplasm progression [Unknown]
  - Peripheral swelling [Unknown]
  - Blood pressure increased [Unknown]
  - Skin discolouration [Unknown]
  - Shock [Unknown]
  - Ear discomfort [Unknown]
  - Diabetic neuropathy [Unknown]
  - Burning sensation [Not Recovered/Not Resolved]
  - Urinary tract infection [Recovered/Resolved]
  - Paraesthesia [Unknown]
  - Swelling [Not Recovered/Not Resolved]
  - Chromaturia [Unknown]
  - Bone disorder [Unknown]
  - Feeling abnormal [Recovering/Resolving]
  - Pain in extremity [Unknown]
  - Headache [Unknown]
  - Injection site pain [Unknown]

NARRATIVE: CASE EVENT DATE: 2013
